FAERS Safety Report 7151557-1 (Version None)
Quarter: 2010Q4

REPORT INFORMATION
  Report Type: 
  Country: None (occurrence: None)
  Receive Date: 20101210
  Receipt Date: 20101202
  Transmission Date: 20110411
  Serious: Yes (Hospitalization)
  Sender: FDA-Public Use
  Company Number: TN-SANOFI-AVENTIS-2010SA073466

PATIENT
  Age: 59 Year
  Sex: Male

DRUGS (3)
  1. PLAVIX [Suspect]
     Indication: ISCHAEMIC STROKE
     Route: 048
     Dates: start: 20101024, end: 20101112
  2. ASPEGIC 1000 [Suspect]
     Indication: ISCHAEMIC STROKE
     Route: 048
     Dates: start: 20101024, end: 20101102
  3. TAHOR [Concomitant]
     Route: 048

REACTIONS (2)
  - DUODENAL ULCER [None]
  - MELAENA [None]
